FAERS Safety Report 21863096 (Version 1)
Quarter: 2023Q1

REPORT INFORMATION
  Report Type: Spontaneous
  Country: FR (occurrence: FR)
  Receive Date: 20230115
  Receipt Date: 20230115
  Transmission Date: 20230418
  Serious: Yes (Other)
  Sender: FDA-Public Use
  Company Number: FR-JNJFOC-20230120219

PATIENT
  Sex: Male

DRUGS (1)
  1. HALOPERIDOL DECANOATE [Suspect]
     Active Substance: HALOPERIDOL DECANOATE
     Indication: Prophylaxis
     Dosage: 0.5 EVERY 4 WEEKS
     Route: 065
     Dates: start: 2020

REACTIONS (2)
  - Deafness [Unknown]
  - Tinnitus [Unknown]
